FAERS Safety Report 12361685 (Version 1)
Quarter: 2016Q2

REPORT INFORMATION
  Report Type: Spontaneous
  Country: US (occurrence: US)
  Receive Date: 20160512
  Receipt Date: 20160512
  Transmission Date: 20160815
  Serious: No
  Sender: FDA-Public Use
  Company Number: US-SA-2016SA074304

PATIENT
  Sex: Female

DRUGS (9)
  1. ONDANSETRON [Concomitant]
     Active Substance: ONDANSETRON
  2. TORSEMIDE. [Concomitant]
     Active Substance: TORSEMIDE
  3. ZOLPIDEM [Concomitant]
     Active Substance: ZOLPIDEM\ZOLPIDEM TARTRATE
  4. GABAPENTIN. [Concomitant]
     Active Substance: GABAPENTIN
  5. MORPHINE SULFATE. [Concomitant]
     Active Substance: MORPHINE SULFATE
  6. ALIROCUMAB PREFILLED PEN [Concomitant]
     Active Substance: ALIROCUMAB
  7. METHOCARBAMOL. [Concomitant]
     Active Substance: METHOCARBAMOL
  8. PRALUENT [Suspect]
     Active Substance: ALIROCUMAB
     Route: 065
  9. POTASSIUM CHLORIDE. [Concomitant]
     Active Substance: POTASSIUM CHLORIDE

REACTIONS (2)
  - Fatigue [Unknown]
  - Influenza like illness [Unknown]
